FAERS Safety Report 10604531 (Version 2)
Quarter: 2014Q4

REPORT INFORMATION
  Report Type: Report from Study
  Country: PL (occurrence: PL)
  Receive Date: 20141124
  Receipt Date: 20141124
  Transmission Date: 20150529
  Serious: Yes (Death, Hospitalization)
  Sender: FDA-Public Use
  Company Number: PL-ROCHE-744451

PATIENT
  Age: 69 Year
  Sex: Female

DRUGS (5)
  1. ADRIAMYCIN [Suspect]
     Active Substance: DOXORUBICIN HYDROCHLORIDE
     Indication: NON-HODGKIN^S LYMPHOMA
     Dosage: FOR 5 DAYS, THERAPY DURATION 3 CYCLES
     Route: 042
     Dates: start: 20100915, end: 20101012
  2. CYCLOPHOSPHAMIDE. [Suspect]
     Active Substance: CYCLOPHOSPHAMIDE
     Indication: NON-HODGKIN^S LYMPHOMA
     Dosage: FOR 5 DAYS, THERAPY DURATION 3 CYCLES
     Route: 042
     Dates: start: 20100915, end: 20101012
  3. PREDNISONE. [Suspect]
     Active Substance: PREDNISONE
     Indication: NON-HODGKIN^S LYMPHOMA
     Dosage: FOR 5 DAYS, THERAPY DURATION 3 CYCLES
     Route: 042
     Dates: start: 20100915, end: 20101106
  4. RITUXIMAB [Suspect]
     Active Substance: RITUXIMAB
     Indication: NON-HODGKIN^S LYMPHOMA
     Dosage: FOR 5 DAYS, TEHRAPY DURATION 3 CYCLES
     Route: 042
     Dates: start: 20100915, end: 20101012
  5. VINCRISTINE [Suspect]
     Active Substance: VINCRISTINE
     Indication: NON-HODGKIN^S LYMPHOMA
     Dosage: FOR 5 DAYS, THERAPY DURATION 3 CYCLES
     Route: 042
     Dates: start: 20100915, end: 20101012

REACTIONS (2)
  - Cardio-respiratory arrest [Fatal]
  - Pancytopenia [Unknown]

NARRATIVE: CASE EVENT DATE: 20101022
